FAERS Safety Report 16438218 (Version 1)
Quarter: 2019Q2

REPORT INFORMATION
  Report Type: Report from Study
  Country: US (occurrence: US)
  Receive Date: 20190617
  Receipt Date: 20190617
  Transmission Date: 20190711
  Serious: Yes (Disabling, Other)
  Sender: FDA-Public Use
  Company Number: US-HORIZON-KRY-0331-2019

PATIENT
  Age: 62 Year
  Sex: Male

DRUGS (14)
  1. 65 FE [Concomitant]
     Dosage: 325MG BY MOUTH DAILY
     Route: 048
  2. TRULICITY [Concomitant]
     Active Substance: DULAGLUTIDE
     Dosage: 1.5MG/0.5 ML ONCE A WEEK
  3. COREG [Concomitant]
     Active Substance: CARVEDILOL
     Dosage: 3.125 MG BY MOUTH 2 TIMES DAILY
     Route: 046
  4. PLAVIX [Concomitant]
     Active Substance: CLOPIDOGREL BISULFATE
     Dosage: 75MG ONCE DAILY
     Route: 048
  5. MEVACOR [Concomitant]
     Active Substance: LOVASTATIN
     Dosage: 40 MG BY MOUTH NIGHTLY
     Route: 048
  6. KRYSTEXXA [Suspect]
     Active Substance: PEGLOTICASE
     Indication: GOUT
     Dosage: 8 MG EVERY 2 WEEKS
     Route: 042
     Dates: start: 20190515
  7. FUROSEMIDE. [Concomitant]
     Active Substance: FUROSEMIDE
     Route: 048
  8. COLCHICINE. [Concomitant]
     Active Substance: COLCHICINE
     Dosage: 0.6MG BY MOUT ONCE DAILY
     Route: 048
  9. BENTYL [Concomitant]
     Active Substance: DICYCLOMINE HYDROCHLORIDE
     Dosage: 20MG BY MOUTH 4 TIMES DAILY
     Route: 048
  10. NORCO [Concomitant]
     Active Substance: ACETAMINOPHEN\HYDROCODONE BITARTRATE
     Dosage: 1 TABLET EVERY 4 HOURS AS NEEDED
     Route: 048
  11. VITAMIN D3 [Concomitant]
     Active Substance: CHOLECALCIFEROL
     Dosage: 1000 UNITS ONCE DAILY
     Route: 048
  12. DECADRON [Concomitant]
     Active Substance: DEXAMETHASONE
     Dosage: 4MG TABLET BY MOUTH ONCE DAILY
     Route: 048
  13. LOTENSIN [Concomitant]
     Active Substance: BENAZEPRIL HYDROCHLORIDE
     Dosage: 5MG ONCE DAILY
     Route: 048
  14. HUMOLOG 75-25 [Concomitant]
     Dosage: 95 UNITS TWICE DAILY

REACTIONS (12)
  - Asthenia [Unknown]
  - Malaise [Unknown]
  - Nerve injury [Unknown]
  - Gait disturbance [Unknown]
  - Fall [Recovered/Resolved]
  - Arthralgia [Recovering/Resolving]
  - Blood pressure increased [Unknown]
  - Monoplegia [Unknown]
  - Decreased appetite [Unknown]
  - Gout [Recovering/Resolving]
  - Blood glucose increased [Unknown]
  - Asthenia [Recovering/Resolving]

NARRATIVE: CASE EVENT DATE: 20190520
